FAERS Safety Report 16878879 (Version 2)
Quarter: 2019Q4

REPORT INFORMATION
  Report Type: Report from Study
  Country: MX (occurrence: US)
  Receive Date: 20191002
  Receipt Date: 20191115
  Transmission Date: 20200122
  Serious: Yes (Hospitalization)
  Sender: FDA-Public Use
  Company Number: MX-AVEXISPRA-CTR-AVXS12019-0020

PATIENT
  Age: 1 Year
  Sex: Female
  Weight: 7.9 kg

DRUGS (3)
  1. AVXS-101 [Suspect]
     Active Substance: ONASEMNOGENE ABEPARVOVEC
     Indication: SPINAL MUSCULAR ATROPHY
     Dosage: UNK, SINGLE
     Route: 042
     Dates: start: 20190830, end: 20190830
  2. ZOFRAN [Concomitant]
     Active Substance: ONDANSETRON HYDROCHLORIDE
  3. PREDNISOLONE. [Concomitant]
     Active Substance: PREDNISOLONE

REACTIONS (4)
  - Vomiting [Recovered/Resolved]
  - Liver function test increased [Recovering/Resolving]
  - Weight decreased [Unknown]
  - Platelet count decreased [Recovered/Resolved]

NARRATIVE: CASE EVENT DATE: 201909
